FAERS Safety Report 15337429 (Version 1)
Quarter: 2018Q3

REPORT INFORMATION
  Report Type: Spontaneous
  Country: KR (occurrence: KR)
  Receive Date: 20180831
  Receipt Date: 20180831
  Transmission Date: 20181010
  Serious: Yes (Death, Other)
  Sender: FDA-Public Use
  Company Number: KR-009507513-1808KOR011322

PATIENT
  Sex: Male

DRUGS (22)
  1. CJ PLASMA SOLUTION A [Concomitant]
     Dosage: QUANTITY:2, DAY:3
     Dates: start: 20180703, end: 20180705
  2. VANCOCIN CP [Concomitant]
     Dosage: QUANTITY:1.2, DAY:1
     Dates: start: 20180704
  3. VANCOCIN CP [Concomitant]
     Dosage: QUANTITY:1, DAY:2
     Dates: start: 20180703, end: 20180713
  4. FEROBA U [Concomitant]
     Dosage: QUALITY:1, DAY:1
     Dates: start: 20180614
  5. MORPHINE HYDROCHLORIDE [Concomitant]
     Active Substance: MORPHINE HYDROCHLORIDE
     Dosage: QUANTITY:6, DAY:1
     Dates: start: 20180703
  6. SODIUM CHLORIDE. [Concomitant]
     Active Substance: SODIUM CHLORIDE
     Dosage: QUANTITY:8 DAY:1
     Dates: start: 20180705
  7. DEXTROSE. [Concomitant]
     Active Substance: DEXTROSE
     Dosage: QUANTITY:2 DAY:5
     Dates: start: 20180704, end: 20180714
  8. LASIX [Concomitant]
     Active Substance: FUROSEMIDE
     Dosage: QUALITY:5, DAY:1
     Dates: start: 20180702, end: 20180704
  9. LASIX [Concomitant]
     Active Substance: FUROSEMIDE
     Dosage: QUANTITY:3, DAY:2
     Dates: start: 20180703, end: 20180705
  10. SODIUM CHLORIDE. [Concomitant]
     Active Substance: SODIUM CHLORIDE
     Dosage: QUANTITY:2 DAY:1
     Dates: start: 20180705
  11. KEYTRUDA [Suspect]
     Active Substance: PEMBROLIZUMAB
     Indication: NON-SMALL CELL LUNG CANCER
     Dosage: QUALITY:2, DAY:1
     Dates: start: 20180704
  12. SODIUM CHLORIDE. [Concomitant]
     Active Substance: SODIUM CHLORIDE
     Dosage: QUANTITY:9, DAY:1
     Dates: start: 20180704
  13. MAXIPIME [Concomitant]
     Active Substance: CEFEPIME HYDROCHLORIDE
     Dosage: QUANTITY:2, DAY:2
     Dates: start: 20180705, end: 20180715
  14. NEXIUM [Concomitant]
     Active Substance: ESOMEPRAZOLE MAGNESIUM
     Dosage: QUANTITY:4 DAY:1
     Route: 042
     Dates: start: 20180705
  15. SODIUM CHLORIDE. [Concomitant]
     Active Substance: SODIUM CHLORIDE
     Dosage: QUANTITY:2 DAY:2
     Dates: start: 20180705, end: 20180712
  16. SODIUM CHLORIDE. [Concomitant]
     Active Substance: SODIUM CHLORIDE
     Dosage: QUANTITY:6, DAY:1
     Dates: start: 20180703
  17. STERILE WATER [Concomitant]
     Active Substance: WATER
     Dosage: QUANTITY:2, DAY:4
     Dates: start: 20180703, end: 20180706
  18. MAXIPIME [Concomitant]
     Active Substance: CEFEPIME HYDROCHLORIDE
     Dosage: QUANTITY:6, DAY:7
     Dates: start: 20180704, end: 20180711
  19. MORPHINE HYDROCHLORIDE [Concomitant]
     Active Substance: MORPHINE HYDROCHLORIDE
     Dosage: QUANTITY:5, DAY:2
     Dates: start: 20180704, end: 20180705
  20. DEXTROSE. [Concomitant]
     Active Substance: DEXTROSE
     Dosage: QUANTITY:1, DAY:1
     Dates: start: 20180704
  21. POTASSIUM CHLORIDE (+) SODIUM CHLORIDE [Concomitant]
     Dosage: QUANTITY:2, DAY:1
     Dates: start: 20180704
  22. AMBROXOL ILDONG [Concomitant]
     Dosage: QUANTITY:1 DAY:2
     Dates: start: 20180705, end: 20180710

REACTIONS (1)
  - Pneumonia [Fatal]

NARRATIVE: CASE EVENT DATE: 201807
